FAERS Safety Report 25906782 (Version 1)
Quarter: 2025Q4

REPORT INFORMATION
  Report Type: Spontaneous
  Country: US (occurrence: US)
  Receive Date: 20251010
  Receipt Date: 20251010
  Transmission Date: 20260118
  Serious: No
  Sender: SPROUT PHARMACEUTICALS
  Company Number: US-Sprout Pharmaceuticals, Inc.-2024SP000391

PATIENT

DRUGS (5)
  1. ADDYI [Suspect]
     Active Substance: FLIBANSERIN
     Indication: Product used for unknown indication
     Dosage: RX # 721133, 100 MILLIGRAM
     Route: 048
     Dates: start: 20241029, end: 20241102
  2. ADDYI [Suspect]
     Active Substance: FLIBANSERIN
     Dosage: RX # 721133, 100 MILLIGRAM
     Route: 048
     Dates: start: 20241207, end: 20241210
  3. NOVOLOG [Concomitant]
     Active Substance: INSULIN ASPART
     Indication: Type 1 diabetes mellitus
     Dosage: UNK UNK
  4. TRESIBA [Concomitant]
     Active Substance: INSULIN DEGLUDEC
     Indication: Type 1 diabetes mellitus
     Dosage: UNK UNK
  5. ADVIL [Concomitant]
     Active Substance: IBUPROFEN
     Indication: Product used for unknown indication
     Dosage: UNK UNK , AS NEEDED

REACTIONS (4)
  - Adverse reaction [Unknown]
  - Skin burning sensation [Unknown]
  - Rash [Recovered/Resolved]
  - Rash pruritic [Recovered/Resolved]

NARRATIVE: CASE EVENT DATE: 20241101
